FAERS Safety Report 23231536 (Version 1)
Quarter: 2023Q4

REPORT INFORMATION
  Report Type: Spontaneous
  Country: IT (occurrence: IT)
  Receive Date: 20231127
  Receipt Date: 20231127
  Transmission Date: 20240109
  Serious: Yes (Hospitalization)
  Sender: FDA-Public Use
  Company Number: None

PATIENT
  Age: 14 Year
  Sex: Female

DRUGS (5)
  1. HALOPERIDOL [Suspect]
     Active Substance: HALOPERIDOL
     Indication: Psychotic disorder
     Route: 048
  2. RIVOTRIL [Concomitant]
     Active Substance: CLONAZEPAM
  3. LYRICA [Concomitant]
     Active Substance: PREGABALIN
     Route: 065
  4. LITHIUM CARBONATE [Concomitant]
     Active Substance: LITHIUM CARBONATE
     Route: 065
  5. QUETIAPINE [Concomitant]
     Active Substance: QUETIAPINE

REACTIONS (5)
  - Dyskinesia [Recovering/Resolving]
  - Gaze palsy [Recovering/Resolving]
  - Headache [Recovering/Resolving]
  - Tachycardia [Recovering/Resolving]
  - Photophobia [Recovering/Resolving]

NARRATIVE: CASE EVENT DATE: 20231022
